FAERS Safety Report 4487852-4 (Version None)
Quarter: 2004Q4

REPORT INFORMATION
  Report Type: 
  Country: None (occurrence: None)
  Receive Date: 20041027
  Receipt Date: 20041027
  Transmission Date: 20050328
  Serious: Yes (Other)
  Sender: FDA-Public Use
  Company Number: None

PATIENT
  Age: 70 Year
  Sex: Male
  Weight: 49.8957 kg

DRUGS (7)
  1. ZOLEDRONIC ACID (ZOMETA) [Suspect]
  2. PHENTOIN [Concomitant]
  3. CASODEX [Concomitant]
  4. ALPRAZOLAM [Concomitant]
  5. LORTAB [Concomitant]
  6. DURAGESIC [Concomitant]
  7. COUMADIN [Concomitant]

REACTIONS (6)
  - BONE DISORDER [None]
  - FISTULA [None]
  - IMPAIRED HEALING [None]
  - POSTOPERATIVE INFECTION [None]
  - TOOTH EXTRACTION [None]
  - WOUND DRAINAGE [None]
